FAERS Safety Report 4913869-9 (Version None)
Quarter: 2006Q1

REPORT INFORMATION
  Report Type: 
  Country: None (occurrence: None)
  Receive Date: 20060216
  Receipt Date: 20051013
  Transmission Date: 20060701
  Serious: Yes (Hospitalization)
  Sender: FDA-Public Use
  Company Number: US-MERCK-0510USA07296

PATIENT
  Age: 47 Year
  Sex: Female
  Weight: 72 kg

DRUGS (5)
  1. VIOXX [Suspect]
     Indication: BACK PAIN
     Route: 048
     Dates: start: 20010101, end: 20050601
  2. ANAPROX [Concomitant]
     Route: 065
     Dates: start: 20020101
  3. MOTRIN [Concomitant]
     Route: 065
  4. RELAFEN [Concomitant]
     Route: 065
     Dates: start: 20020101
  5. SYNTHROID [Concomitant]
     Indication: THYROID DISORDER
     Route: 065
     Dates: start: 19950101

REACTIONS (7)
  - ANGINA PECTORIS [None]
  - ARTHRALGIA [None]
  - GASTROOESOPHAGEAL REFLUX DISEASE [None]
  - HYPERTENSION [None]
  - MYOCARDIAL INFARCTION [None]
  - OEDEMA PERIPHERAL [None]
  - OVERDOSE [None]
